FAERS Safety Report 4788270-1 (Version None)
Quarter: 2005Q4

REPORT INFORMATION
  Report Type: 
  Country: None (occurrence: None)
  Receive Date: 20051004
  Receipt Date: 20051004
  Transmission Date: 20060501
  Serious: No
  Sender: FDA-Public Use
  Company Number: None

PATIENT
  Age: 16 Year
  Sex: Female
  Weight: 78.4723 kg

DRUGS (1)
  1. LORATADINE [Suspect]
     Indication: RHINITIS ALLERGIC
     Dosage: 10 MG DAILY

REACTIONS (1)
  - CHEST PAIN [None]
